FAERS Safety Report 6737984-2 (Version None)
Quarter: 2010Q2

REPORT INFORMATION
  Report Type: 
  Country: None (occurrence: None)
  Receive Date: 20100524
  Receipt Date: 20100512
  Transmission Date: 20101027
  Serious: Yes (Life-Threatening)
  Sender: FDA-Public Use
  Company Number: JP-ROCHE-698098

PATIENT
  Sex: Male
  Weight: 56 kg

DRUGS (7)
  1. ACTEMRA [Suspect]
     Indication: RHEUMATOID ARTHRITIS
     Dosage: NOTE: DOSAGE IS UNCERTAIN.
     Route: 041
     Dates: start: 20091201, end: 20100301
  2. PREDONINE [Concomitant]
     Route: 048
     Dates: start: 20000101
  3. RIMATIL [Concomitant]
     Route: 048
     Dates: start: 20000101
  4. METOLATE [Concomitant]
     Route: 048
     Dates: start: 20000101
  5. LOXONIN [Concomitant]
     Route: 048
     Dates: start: 20000101
  6. CLARITH [Concomitant]
     Route: 048
  7. MUCOSTA [Concomitant]
     Dosage: DOSE FORM: PERORAL AGENT
     Route: 048

REACTIONS (1)
  - LOWER RESPIRATORY TRACT INFECTION [None]
